FAERS Safety Report 6921585-7 (Version None)
Quarter: 2010Q3

REPORT INFORMATION
  Report Type: 
  Country: None (occurrence: None)
  Receive Date: 20100812
  Receipt Date: 20100806
  Transmission Date: 20110219
  Serious: Yes (Hospitalization)
  Sender: FDA-Public Use
  Company Number: US-RB-004144-10

PATIENT
  Sex: Male

DRUGS (4)
  1. SUBOXONE [Suspect]
     Indication: DRUG DEPENDENCE
     Route: 060
     Dates: start: 20090912
  2. LOVENOX [Concomitant]
     Indication: THROMBOSIS
     Route: 065
  3. COUMADIN [Concomitant]
     Indication: THROMBOSIS
     Dosage: 15 MG DAILY
     Route: 065
  4. TRAZODONE HCL [Concomitant]
     Indication: SLEEP DISORDER
     Dosage: 150 MG DAILY
     Route: 065

REACTIONS (11)
  - ABDOMINAL PAIN UPPER [None]
  - ANTICOAGULATION DRUG LEVEL BELOW THERAPEUTIC [None]
  - DYSPNOEA [None]
  - NAUSEA [None]
  - PAIN [None]
  - PAIN IN EXTREMITY [None]
  - PULMONARY EMBOLISM [None]
  - THROMBOSIS [None]
  - TOOTH EROSION [None]
  - TOOTHACHE [None]
  - VOMITING [None]
